FAERS Safety Report 4967630-X (Version None)
Quarter: 2006Q2

REPORT INFORMATION
  Report Type: 
  Country: None (occurrence: None)
  Receive Date: 20060405
  Receipt Date: 20060307
  Transmission Date: 20061013
  Serious: Yes (Death)
  Sender: FDA-Public Use
  Company Number: 2006043933

PATIENT
  Sex: Male

DRUGS (8)
  1. GEODON [Suspect]
     Indication: BIPOLAR DISORDER
     Dosage: ORAL
     Route: 048
     Dates: start: 20030617, end: 20040114
  2. SYNTHROID [Concomitant]
  3. MONOPRIL [Concomitant]
  4. GLUCOPHAGE [Concomitant]
  5. PROPRANOLOL (PROPANOLOL) [Concomitant]
  6. LITHOBID [Concomitant]
  7. VALIUM [Concomitant]
  8. SEROQUEL [Concomitant]

REACTIONS (2)
  - SHOCK [None]
  - SUDDEN DEATH [None]
